FAERS Safety Report 15202697 (Version 1)
Quarter: 2018Q3

REPORT INFORMATION
  Report Type: Spontaneous
  Country: IL (occurrence: IL)
  Receive Date: 20180726
  Receipt Date: 20180726
  Transmission Date: 20181010
  Serious: Yes (Other)
  Sender: FDA-Public Use
  Company Number: IL-MYLANLABS-2018M1054667

PATIENT
  Age: 54 Year
  Sex: Male

DRUGS (2)
  1. MERCAPTOPURINE. [Suspect]
     Active Substance: MERCAPTOPURINE
     Indication: CROHN^S DISEASE
     Route: 048
  2. INFLIXIMAB [Suspect]
     Active Substance: INFLIXIMAB
     Indication: CROHN^S DISEASE
     Route: 048

REACTIONS (4)
  - Gastrointestinal lymphoma [Recovered/Resolved]
  - Anal fistula [Recovered/Resolved]
  - Epstein-Barr virus infection [Unknown]
  - Hodgkin^s disease [Recovered/Resolved]
